FAERS Safety Report 7284593-5 (Version None)
Quarter: 2011Q1

REPORT INFORMATION
  Report Type: 
  Country: None (occurrence: None)
  Receive Date: 20110210
  Receipt Date: 20110201
  Transmission Date: 20110831
  Serious: Yes (Other)
  Sender: FDA-Public Use
  Company Number: US-BIOGENIDEC-2011BI004083

PATIENT
  Sex: Female
  Weight: 77 kg

DRUGS (14)
  1. TRIAMCINOLONE ACETONIDE [Concomitant]
     Route: 061
  2. APRODINE [Concomitant]
  3. PREMARIN [Concomitant]
  4. WELLBUTRIN [Concomitant]
  5. VERAPAMIL HCL [Concomitant]
  6. DIAZEPAM [Concomitant]
  7. FEXOFENADINE HCL [Concomitant]
     Indication: MULTIPLE ALLERGIES
     Route: 048
  8. POTASSIUM CHLORIDE [Concomitant]
  9. MAXALT [Concomitant]
     Indication: HEADACHE
  10. ACETAMINOPHEN AND HYDROCODONE BITARTRATE [Concomitant]
     Indication: PAIN
  11. TOPAMAX [Concomitant]
  12. ASPIRIN [Concomitant]
  13. LASIX [Concomitant]
     Route: 048
  14. AVONEX [Suspect]
     Indication: MULTIPLE SCLEROSIS
     Route: 030
     Dates: start: 20020107

REACTIONS (1)
  - BREAST CANCER [None]
